FAERS Safety Report 10686207 (Version 2)
Quarter: 2015Q1

REPORT INFORMATION
  Report Type: Spontaneous
  Country: US (occurrence: US)
  Receive Date: 20141231
  Receipt Date: 20150217
  Transmission Date: 20150720
  Serious: Yes (Other)
  Sender: FDA-Public Use
  Company Number: US-ASTELLAS-2014US021517

PATIENT
  Age: 35 Year
  Sex: Male

DRUGS (1)
  1. PROGRAF [Suspect]
     Active Substance: TACROLIMUS\TACROLIMUS ANHYDROUS
     Indication: RENAL TRANSPLANT
     Route: 048
     Dates: start: 20081219

REACTIONS (3)
  - Foot fracture [Unknown]
  - Hand fracture [Unknown]
  - Pancreas transplant [Unknown]

NARRATIVE: CASE EVENT DATE: 20110209
